FAERS Safety Report 17367819 (Version 1)
Quarter: 2020Q1

REPORT INFORMATION
  Report Type: Spontaneous
  Country: US (occurrence: US)
  Receive Date: 20200203
  Receipt Date: 20200203
  Transmission Date: 20200409
  Serious: No
  Sender: FDA-Public Use
  Company Number: None

PATIENT
  Sex: Female

DRUGS (2)
  1. BENEFIBER [Suspect]
     Active Substance: STARCH, WHEAT
  2. COLACE [Suspect]
     Active Substance: DOCUSATE SODIUM

REACTIONS (1)
  - Treatment failure [None]
